FAERS Safety Report 5071802-6 (Version None)
Quarter: 2006Q3

REPORT INFORMATION
  Report Type: 
  Country: None (occurrence: None)
  Receive Date: 20060801
  Receipt Date: 20060719
  Transmission Date: 20061208
  Serious: Yes (Other)
  Sender: FDA-Public Use
  Company Number: HQWYE180119JUL06

PATIENT
  Age: 43 Year
  Sex: Female

DRUGS (2)
  1. CYCLOSPORINE [Suspect]
     Indication: PROPHYLAXIS AGAINST TRANSPLANT REJECTION
     Dosage: ^275/275 MG^ DAILY ORAL
     Route: 048
     Dates: start: 20060712
  2. CELLCEPT [Concomitant]

REACTIONS (2)
  - KIDNEY TRANSPLANT REJECTION [None]
  - WEIGHT INCREASED [None]
